FAERS Safety Report 6543175-0 (Version None)
Quarter: 2010Q1

REPORT INFORMATION
  Report Type: 
  Country: None (occurrence: None)
  Receive Date: 20100120
  Receipt Date: 20100115
  Transmission Date: 20100710
  Serious: Yes (Hospitalization, Other)
  Sender: FDA-Public Use
  Company Number: FR-SANOFI-AVENTIS-2009SA005513

PATIENT
  Age: 80 Year
  Sex: Male
  Weight: 39 kg

DRUGS (46)
  1. RIFAMPICIN [Suspect]
     Indication: INFECTION
     Route: 048
     Dates: start: 20090930, end: 20091027
  2. LEVOFLOXACIN [Suspect]
     Indication: INFECTION
     Route: 048
     Dates: start: 20090930, end: 20091027
  3. CARDENSIEL [Concomitant]
     Indication: ATRIAL FIBRILLATION
     Route: 048
  4. CARDENSIEL [Concomitant]
     Route: 048
     Dates: end: 20091217
  5. HEMIGOXINE NATIVELLE [Concomitant]
     Indication: ATRIAL FIBRILLATION
     Route: 048
     Dates: end: 20091217
  6. LOVENOX [Concomitant]
     Indication: THROMBOSIS PROPHYLAXIS
     Route: 058
     Dates: start: 20090917, end: 20090921
  7. LOVENOX [Concomitant]
     Route: 058
     Dates: start: 20091030, end: 20091208
  8. HALDOL [Concomitant]
     Indication: AGITATION
     Route: 048
     Dates: start: 20091104, end: 20091217
  9. VITAMINE B [Concomitant]
     Indication: PROPHYLAXIS
     Route: 048
     Dates: start: 20091007, end: 20091030
  10. VITAMINE B [Concomitant]
     Route: 048
     Dates: start: 20091104, end: 20091217
  11. STABLON [Concomitant]
     Indication: DEPRESSION
     Route: 048
     Dates: start: 20090101, end: 20091217
  12. EFFERALGAN [Concomitant]
     Dates: start: 20090921, end: 20090925
  13. EFFERALGAN [Concomitant]
     Route: 048
     Dates: end: 20091007
  14. EFFERALGAN [Concomitant]
     Route: 048
     Dates: start: 20091204, end: 20091217
  15. PROSCAR [Concomitant]
     Route: 048
     Dates: end: 20091217
  16. FORLAX [Concomitant]
     Indication: CONSTIPATION
     Route: 048
     Dates: start: 20091130, end: 20091204
  17. BENERVA [Concomitant]
     Indication: PROPHYLAXIS
     Route: 048
     Dates: start: 20091030, end: 20091104
  18. NICOBION [Concomitant]
     Indication: PROPHYLAXIS
     Route: 048
     Dates: start: 20091009, end: 20091217
  19. LANSOYL [Concomitant]
     Indication: CONSTIPATION
     Dosage: DOSE:2 UNIT(S)
     Route: 048
     Dates: start: 20091007, end: 20091030
  20. CALCIPARINE [Concomitant]
     Indication: THROMBOSIS PROPHYLAXIS
     Route: 058
     Dates: start: 20091001, end: 20091001
  21. ARIXTRA [Concomitant]
     Indication: THROMBOSIS PROPHYLAXIS
     Route: 058
     Dates: start: 20091002, end: 20091030
  22. TOPALGIC [Concomitant]
     Route: 048
     Dates: start: 20091110, end: 20091217
  23. SMECTITE [Concomitant]
     Route: 048
     Dates: start: 20091112, end: 20091125
  24. LOPERAMIDE [Concomitant]
     Route: 048
     Dates: start: 20091112, end: 20091113
  25. ACUPAN [Concomitant]
     Route: 048
     Dates: start: 20091127, end: 20091128
  26. ATARAX [Concomitant]
     Indication: ANXIETY
     Route: 048
     Dates: start: 20091127, end: 20091128
  27. TRANSIPEG /FRA/ [Concomitant]
     Indication: CONSTIPATION
     Route: 048
     Dates: start: 20091208, end: 20091217
  28. TIAPRIDAL [Concomitant]
     Indication: AGITATION
     Route: 048
     Dates: start: 20091030, end: 20091107
  29. TARDYFERON /GFR/ [Concomitant]
     Route: 048
     Dates: end: 20090916
  30. KARDEGIC [Concomitant]
     Route: 048
     Dates: end: 20091102
  31. QUESTRAN [Concomitant]
     Indication: DRUG USE FOR UNKNOWN INDICATION
     Route: 048
     Dates: start: 20091030, end: 20091217
  32. RABEPRAZOLE SODIUM [Concomitant]
     Route: 048
     Dates: end: 20090926
  33. OMEPRAZOLE [Concomitant]
     Route: 048
     Dates: start: 20090926, end: 20091007
  34. RANITIDINE [Concomitant]
     Route: 048
     Dates: start: 20091007, end: 20091030
  35. PREVISCAN [Concomitant]
     Indication: ATRIAL FIBRILLATION
     Route: 048
     Dates: end: 20090916
  36. XATRAL [Concomitant]
     Route: 048
     Dates: end: 20091007
  37. SERESTA [Concomitant]
     Indication: ANXIETY
     Route: 048
     Dates: end: 20091030
  38. MAGNE-B6 [Concomitant]
     Indication: ALCOHOLISM
     Route: 048
     Dates: end: 20090922
  39. CODOLIPRANE [Concomitant]
     Route: 048
     Dates: start: 20091007, end: 20091104
  40. LOPERAMIDE [Concomitant]
     Route: 048
     Dates: start: 20090917, end: 20090927
  41. ATARAX [Concomitant]
     Route: 048
     Dates: start: 20090921, end: 20090921
  42. LASILIX [Concomitant]
     Route: 048
     Dates: start: 20090924, end: 20090924
  43. LASILIX [Concomitant]
     Route: 048
     Dates: start: 20091007, end: 20091030
  44. ACUPAN [Concomitant]
     Route: 048
     Dates: start: 20090924, end: 20090924
  45. KETOPROFEN [Concomitant]
     Route: 042
     Dates: start: 20090921, end: 20090925
  46. FRAGMIN /SWE/ [Concomitant]
     Indication: THROMBOSIS PROPHYLAXIS
     Route: 058
     Dates: start: 20091208, end: 20091215

REACTIONS (1)
  - WEIGHT DECREASED [None]
